FAERS Safety Report 8012051-9 (Version None)
Quarter: 2011Q4

REPORT INFORMATION
  Report Type: 
  Country: None (occurrence: None)
  Receive Date: 20111228
  Receipt Date: 20111208
  Transmission Date: 20120403
  Serious: Yes (Hospitalization)
  Sender: FDA-Public Use
  Company Number: DE-GLAXOSMITHKLINE-D0073728A

PATIENT
  Sex: Female
  Weight: 16.5 kg

DRUGS (3)
  1. TROBALT [Suspect]
     Indication: EPILEPSY
     Route: 048
     Dates: start: 20110301
  2. LEVETIRACETAM [Concomitant]
     Indication: EPILEPSY
     Dosage: 625MG PER DAY
     Route: 048
  3. TOPIRAMATE [Concomitant]
     Indication: EPILEPSY
     Dosage: 125MG PER DAY
     Route: 048

REACTIONS (2)
  - MICTURITION DISORDER [None]
  - URINARY RETENTION [None]
